FAERS Safety Report 7969736-X (Version None)
Quarter: 2011Q4

REPORT INFORMATION
  Report Type: 
  Country: None (occurrence: None)
  Receive Date: 20111121
  Receipt Date: 20110816
  Transmission Date: 20120403
  Serious: No
  Sender: FDA-Public Use
  Company Number: 1000022927

PATIENT
  Age: 55 Year
  Sex: Female

DRUGS (5)
  1. GABAPENTIN [Concomitant]
  2. PRILOSEC (OMEPRAZOLE) (OMEPRAZOLE) [Concomitant]
  3. VIIBRYD [Suspect]
     Indication: DEPRESSION
     Dosage: 10 MG (10 MG, 1 IN 1 D), ORAL
     Route: 048
     Dates: start: 20110701
  4. METHADONE (METHADONE) (METHADONE) [Concomitant]
  5. LISINOPRIL [Concomitant]

REACTIONS (2)
  - HAEMOPTYSIS [None]
  - DEPRESSION [None]
